FAERS Safety Report 14149242 (Version 2)
Quarter: 2018Q1

REPORT INFORMATION
  Report Type: Spontaneous
  Country: JP (occurrence: JP)
  Receive Date: 20171101
  Receipt Date: 20180313
  Transmission Date: 20180508
  Serious: Yes (Death, Life-Threatening, Hospitalization, Disabling, Other)
  Sender: FDA-Public Use
  Company Number: JP-MYLANLABS-2017M1067555

PATIENT
  Age: 45 Year
  Sex: Female

DRUGS (36)
  1. GEMCITABINE [Suspect]
     Active Substance: GEMCITABINE\GEMCITABINE HYDROCHLORIDE
     Dosage: 1300 MG, CYCLE
     Route: 042
     Dates: start: 20170614
  2. AVASTIN [Suspect]
     Active Substance: BEVACIZUMAB
     Dosage: 580 MG, CYCLE
     Route: 042
     Dates: start: 20170628
  3. DECADRON [Suspect]
     Active Substance: DEXAMETHASONE
     Dosage: 6.6 MG, CYCLE
     Route: 042
     Dates: start: 20170705
  4. DECADRON [Suspect]
     Active Substance: DEXAMETHASONE
     Dosage: 4 MG, CYCLE
     Route: 048
     Dates: start: 20170629
  5. EMEND [Suspect]
     Active Substance: APREPITANT
     Dosage: 125 MG, CYCLE
     Route: 048
     Dates: start: 20170510
  6. CARBOPLATIN INJ. 50MG ^NK^ [Suspect]
     Active Substance: CARBOPLATIN
     Indication: OVARIAN CANCER
     Dosage: 490 MG, CYCLE
     Route: 042
     Dates: start: 20170510
  7. CARBOPLATIN INJ. 50MG ^NK^ [Suspect]
     Active Substance: CARBOPLATIN
     Dosage: 490 MG, CYCLE
     Route: 042
     Dates: start: 20170628
  8. GRANISETRON [Suspect]
     Active Substance: GRANISETRON
     Dosage: 3 MG, CYCLE
     Route: 042
     Dates: start: 20170628
  9. AVASTIN [Suspect]
     Active Substance: BEVACIZUMAB
     Indication: OVARIAN CANCER
     Dosage: 580 MG, CYCLE
     Route: 042
     Dates: start: 20170510
  10. EMEND [Suspect]
     Active Substance: APREPITANT
     Dosage: 125 MG, CYCLE
     Route: 048
     Dates: start: 20170628
  11. AVASTIN [Suspect]
     Active Substance: BEVACIZUMAB
     Dosage: 580 MG, CYCLE
     Route: 042
     Dates: start: 20170607
  12. DECADRON [Suspect]
     Active Substance: DEXAMETHASONE
     Indication: PREMEDICATION
     Dosage: 4.95 MG, CYCLE
     Route: 042
     Dates: start: 20170510
  13. DECADRON [Suspect]
     Active Substance: DEXAMETHASONE
     Dosage: 6.6 MG, CYCLE
     Route: 042
     Dates: start: 20170517
  14. DECADRON [Suspect]
     Active Substance: DEXAMETHASONE
     Dosage: 4 MG, CYCLE
     Route: 048
     Dates: start: 20170609
  15. EMEND [Suspect]
     Active Substance: APREPITANT
     Dosage: 80 MG, CYCLE
     Route: 048
     Dates: start: 20170609
  16. EMEND [Suspect]
     Active Substance: APREPITANT
     Dosage: 125 MG, CYCLE
     Route: 048
     Dates: start: 20170607
  17. GRANISETRON [Suspect]
     Active Substance: GRANISETRON
     Indication: PREMEDICATION
     Dosage: 3 MG, CYCLE
     Route: 042
     Dates: start: 20170510
  18. GEMCITABINE [Suspect]
     Active Substance: GEMCITABINE\GEMCITABINE HYDROCHLORIDE
     Dosage: 1300 MG, CYCLE
     Route: 042
     Dates: start: 20170607
  19. DECADRON [Suspect]
     Active Substance: DEXAMETHASONE
     Dosage: 4.95 MG, CYCLE
     Route: 042
     Dates: start: 20170628
  20. DECADRON [Suspect]
     Active Substance: DEXAMETHASONE
     Dosage: 4 MG, CYCLE
     Route: 048
     Dates: start: 20170608
  21. CARBOPLATIN INJ. 50MG ^NK^ [Suspect]
     Active Substance: CARBOPLATIN
     Dosage: 490 MG, CYCLE
     Route: 042
     Dates: start: 20170607
  22. GEMCITABINE [Suspect]
     Active Substance: GEMCITABINE\GEMCITABINE HYDROCHLORIDE
     Dosage: 1300 MG, CYCLE
     Route: 042
     Dates: start: 20170517
  23. GEMCITABINE [Suspect]
     Active Substance: GEMCITABINE\GEMCITABINE HYDROCHLORIDE
     Dosage: 1300 MG, CYCLE
     Route: 042
     Dates: start: 20170628
  24. DECADRON [Suspect]
     Active Substance: DEXAMETHASONE
     Dosage: 4.95 MG, CYCLE
     Route: 042
     Dates: start: 20170607
  25. DECADRON [Suspect]
     Active Substance: DEXAMETHASONE
     Indication: PREMEDICATION
     Dosage: 4 MG, CYCLE
     Route: 048
     Dates: start: 20170511
  26. DECADRON [Suspect]
     Active Substance: DEXAMETHASONE
     Dosage: 4 MG, CYCLE
     Route: 048
     Dates: start: 20170630
  27. EMEND [Suspect]
     Active Substance: APREPITANT
     Indication: PREMEDICATION
     Dosage: 80 MG, CYCLE
     Route: 048
     Dates: start: 20170511
  28. EMEND [Suspect]
     Active Substance: APREPITANT
     Dosage: 80 MG, CYCLE
     Route: 048
     Dates: start: 20170629
  29. GRANISETRON [Suspect]
     Active Substance: GRANISETRON
     Dosage: 3 MG, CYCLE
     Route: 042
     Dates: start: 20170607
  30. GEMCITABINE [Suspect]
     Active Substance: GEMCITABINE\GEMCITABINE HYDROCHLORIDE
     Dosage: 1300 MG, CYCLE
     Route: 042
     Dates: start: 20170705
  31. GEMCITABINE [Suspect]
     Active Substance: GEMCITABINE\GEMCITABINE HYDROCHLORIDE
     Indication: OVARIAN CANCER
     Dosage: 1300 MG, CYCLE
     Route: 042
     Dates: start: 20170510
  32. DECADRON [Suspect]
     Active Substance: DEXAMETHASONE
     Dosage: 6.6 MG, CYCLE
     Route: 042
     Dates: start: 20170614
  33. DECADRON [Suspect]
     Active Substance: DEXAMETHASONE
     Dosage: 4 MG, CYCLE
     Route: 048
     Dates: start: 20170512
  34. EMEND [Suspect]
     Active Substance: APREPITANT
     Dosage: 80 MG, CYCLE
     Route: 048
     Dates: start: 20170512
  35. EMEND [Suspect]
     Active Substance: APREPITANT
     Dosage: 80 MG, CYCLE
     Route: 048
     Dates: start: 20170608
  36. EMEND [Suspect]
     Active Substance: APREPITANT
     Dosage: 80 MG, CYCLE
     Route: 048
     Dates: start: 20170630

REACTIONS (4)
  - Pleural effusion [Not Recovered/Not Resolved]
  - Intracardiac thrombus [Not Recovered/Not Resolved]
  - Cardiac failure [Fatal]
  - Cardiomegaly [Not Recovered/Not Resolved]

NARRATIVE: CASE EVENT DATE: 20170726
